FAERS Safety Report 25042274 (Version 1)
Quarter: 2025Q1

REPORT INFORMATION
  Report Type: Spontaneous
  Country: US (occurrence: US)
  Receive Date: 20250305
  Receipt Date: 20250305
  Transmission Date: 20250408
  Serious: Yes (Death)
  Sender: Kenvue
  Company Number: US-KENVUE-20250206820

PATIENT
  Sex: Female

DRUGS (1)
  1. MENTHOL\METHYL SALICYLATE [Suspect]
     Active Substance: MENTHOL\METHYL SALICYLATE
     Indication: Product used for unknown indication
     Route: 065

REACTIONS (1)
  - Product use issue [Fatal]
